FAERS Safety Report 7531066-8 (Version None)
Quarter: 2011Q2

REPORT INFORMATION
  Report Type: 
  Country: None (occurrence: None)
  Receive Date: 20110531
  Receipt Date: 20110516
  Transmission Date: 20111010
  Serious: Yes (Other)
  Sender: FDA-Public Use
  Company Number: 2011MA005965

PATIENT
  Age: 36 Year
  Sex: Female

DRUGS (1)
  1. PROPYLTHIOURACIL TAB [Suspect]
     Indication: BASEDOW'S DISEASE
     Dosage: ;OD;

REACTIONS (8)
  - MUSCULOSKELETAL DISORDER [None]
  - ANTINEUTROPHIL CYTOPLASMIC ANTIBODY POSITIVE [None]
  - GLOMERULONEPHRITIS [None]
  - LUNG DISORDER [None]
  - HAEMOPTYSIS [None]
  - RENAL DISORDER [None]
  - ARTHRALGIA [None]
  - VASCULITIS [None]
